FAERS Safety Report 11983605 (Version 1)
Quarter: 2016Q1

REPORT INFORMATION
  Report Type: Spontaneous
  Country: US (occurrence: US)
  Receive Date: 20160201
  Receipt Date: 20160201
  Transmission Date: 20160526
  Serious: No
  Sender: FDA-Public Use
  Company Number: US-HORIZON-BUP-0020-2016

PATIENT
  Age: 2 Year
  Sex: Female

DRUGS (3)
  1. RAVICTI [Concomitant]
     Active Substance: GLYCEROL PHENYLBUTYRATE
     Indication: ORNITHINE TRANSCARBAMOYLASE DEFICIENCY
     Dosage: 0.5 ML THREE TIMES DAILY
     Route: 048
     Dates: start: 20160113
  2. BUPHENYL [Suspect]
     Active Substance: SODIUM PHENYLBUTYRATE
     Indication: ORNITHINE TRANSCARBAMOYLASE DEFICIENCY
     Dosage: 3 G DAILY
     Route: 048
  3. CITRULLINE [Concomitant]
     Active Substance: CITRULLINE

REACTIONS (1)
  - Ammonia increased [Unknown]
